FAERS Safety Report 15765305 (Version 2)
Quarter: 2019Q1

REPORT INFORMATION
  Report Type: Spontaneous
  Country: DE (occurrence: DE)
  Receive Date: 20181227
  Receipt Date: 20190220
  Transmission Date: 20190417
  Serious: Yes (Life-Threatening, Hospitalization, Other)
  Sender: FDA-Public Use
  Company Number: DE-SA-2018SA389484

PATIENT
  Age: 64 Year
  Sex: Male
  Weight: 78 kg

DRUGS (15)
  1. BEROTEC [Concomitant]
     Active Substance: FENOTEROL HYDROBROMIDE
     Indication: ASTHMA
     Dosage: UNK UNK, PRN
     Route: 055
  2. ALFASON [Concomitant]
     Active Substance: HYDROCORTISONE BUTYRATE
  3. FEXOFENADINE [Concomitant]
     Active Substance: FEXOFENADINE\FEXOFENADINE HYDROCHLORIDE
     Indication: DERMATITIS ATOPIC
     Dosage: 180 0 ? 0 - 1
     Route: 048
  4. FEXOFENADINE [Concomitant]
     Active Substance: FEXOFENADINE\FEXOFENADINE HYDROCHLORIDE
  5. SPIRIVA [Concomitant]
     Active Substance: TIOTROPIUM BROMIDE MONOHYDRATE
     Indication: ASTHMA
     Dosage: 1X1 PUFF
     Route: 055
  6. PREDNISOLONE. [Concomitant]
     Active Substance: PREDNISOLONE
     Dosage: 30 MG
  7. SPIRONOLACTONE. [Concomitant]
     Active Substance: SPIRONOLACTONE
     Dosage: 25 MG 1 ? 0 - 0
  8. NERIBAS [Concomitant]
  9. PANTOPRAZOLE [Concomitant]
     Active Substance: PANTOPRAZOLE
  10. METOPROLOL. [Concomitant]
     Active Substance: METOPROLOL
     Dosage: 1 ? 0 - 1
  11. RAMIPRIL. [Concomitant]
     Active Substance: RAMIPRIL
  12. DUPIXENT [Suspect]
     Active Substance: DUPILUMAB
     Indication: DERMATITIS ATOPIC
     Dosage: 300 MG
     Route: 058
     Dates: start: 20180305
  13. VIANI [Concomitant]
     Active Substance: FLUTICASONE PROPIONATE\SALMETEROL XINAFOATE
     Indication: ASTHMA
     Dosage: 2 DF (2X1 PUFF)
     Route: 055
  14. XOLAIR [Concomitant]
     Active Substance: OMALIZUMAB
  15. KELUAL [Concomitant]

REACTIONS (6)
  - Cerebral infarction [Recovered/Resolved]
  - Atrial fibrillation [Recovered/Resolved]
  - Superinfection [Unknown]
  - Conjunctivitis [Unknown]
  - Pruritus [Unknown]
  - Cerebrovascular accident [Recovered/Resolved]

NARRATIVE: CASE EVENT DATE: 20180604
